FAERS Safety Report 5226360-X (Version None)
Quarter: 2007Q1

REPORT INFORMATION
  Report Type: 
  Country: None (occurrence: None)
  Receive Date: 20070201
  Receipt Date: 20070125
  Transmission Date: 20070707
  Serious: Yes (Hospitalization)
  Sender: FDA-Public Use
  Company Number: HQWYE648125JAN07

PATIENT
  Age: 84 Year
  Sex: Male

DRUGS (2)
  1. CORDARONE [Suspect]
     Dosage: 200 MG, DOSAGE AND FREQUENCY UNSPECIFIED
     Route: 048
     Dates: end: 20050928
  2. HEMIGOXINE NATIVELLE [Suspect]
     Dosage: DOSE AND FREQUENCY UNKNOWN
     Route: 048
     Dates: end: 20050928

REACTIONS (2)
  - BRADYARRHYTHMIA [None]
  - SYNCOPE [None]
